FAERS Safety Report 26184628 (Version 1)
Quarter: 2025Q4

REPORT INFORMATION
  Report Type: Report from Study
  Country: EU (occurrence: EU)
  Receive Date: 20251222
  Receipt Date: 20251222
  Transmission Date: 20260118
  Serious: Yes (Other)
  Sender: AUROBINDO
  Company Number: EU-VIIV HEALTHCARE LIMITED-ES2023GSK077639

PATIENT
  Age: 53 Year
  Sex: Male

DRUGS (3)
  1. LAMIVUDINE [Suspect]
     Active Substance: LAMIVUDINE
     Indication: HIV infection
     Dosage: UNK
     Route: 065
  2. DOLUTEGRAVIR [Suspect]
     Active Substance: DOLUTEGRAVIR
     Indication: HIV infection
     Dosage: UNK
     Route: 065
  3. DOLUTEGRAVIR + EMTRICITABINE + TENOFOVIR DISOPROXIL FUMARATE [Concomitant]
     Indication: HIV infection
     Dosage: UNK
     Route: 065

REACTIONS (1)
  - Blood HIV RNA increased [Unknown]
